FAERS Safety Report 4458097-9 (Version None)
Quarter: 2004Q3

REPORT INFORMATION
  Report Type: 
  Country: None (occurrence: None)
  Receive Date: 20040923
  Receipt Date: 20040827
  Transmission Date: 20050211
  Serious: Yes (Other)
  Sender: FDA-Public Use
  Company Number: 2004AP000575

PATIENT
  Age: 52 Year
  Sex: Female

DRUGS (5)
  1. PAROXETINE HYDROCHLORIDE [Suspect]
     Indication: DEPRESSIVE SYMPTOM
     Dosage: 10 MG; EVERY DAY (DAILY); ORAL
     Route: 048
     Dates: start: 20030301, end: 20030326
  2. PAROXETINE HYDROCHLORIDE [Suspect]
     Indication: MUSCLE SPASMS
     Dosage: 10 MG; EVERY DAY (DAILY); ORAL
     Route: 048
     Dates: start: 20030301, end: 20030326
  3. PAPAVERINE [Suspect]
     Indication: DIAPHRAGMATIC DISORDER
     Dosage: 40 MG
  4. BUSPAR [Suspect]
     Indication: ANXIETY
     Dosage: 10 MG; 4 TIMES A DAY
  5. WARAN [Concomitant]

REACTIONS (10)
  - CHEST DISCOMFORT [None]
  - CHEST PAIN [None]
  - DIAPHRAGMATIC DISORDER [None]
  - DRUG INTERACTION [None]
  - ECCHYMOSIS [None]
  - ERYTHEMA NODOSUM [None]
  - MUSCLE SPASMS [None]
  - RASH ERYTHEMATOUS [None]
  - RED BLOOD CELLS URINE [None]
  - SEROTONIN SYNDROME [None]
